FAERS Safety Report 9231596 (Version 2)
Quarter: 2013Q2

REPORT INFORMATION
  Report Type: Spontaneous
  Country: VE (occurrence: VE)
  Receive Date: 20130415
  Receipt Date: 20130424
  Transmission Date: 20140414
  Serious: Yes (Death)
  Sender: FDA-Public Use
  Company Number: VE-BAYER-2013-047450

PATIENT
  Sex: 0

DRUGS (1)
  1. MIRENA [Suspect]
     Indication: CONTRACEPTION
     Dosage: UNK
     Route: 064
     Dates: start: 20110627

REACTIONS (4)
  - Congenital anomaly [Fatal]
  - Spine malformation [Fatal]
  - Cleft lip [Fatal]
  - Exposure during pregnancy [None]
